FAERS Safety Report 15274503 (Version 1)
Quarter: 2018Q3

REPORT INFORMATION
  Report Type: Spontaneous
  Country: US (occurrence: US)
  Receive Date: 20180814
  Receipt Date: 20180814
  Transmission Date: 20181010
  Serious: Yes (Hospitalization, Other)
  Sender: FDA-Public Use
  Company Number: US-ROCHE-2168511

PATIENT
  Age: 56 Year
  Sex: Female
  Weight: 68.1 kg

DRUGS (3)
  1. OCREVUS [Suspect]
     Active Substance: OCRELIZUMAB
     Indication: MULTIPLE SCLEROSIS
     Dosage: HALF DOSE
     Route: 065
     Dates: start: 20170906
  2. OCREVUS [Suspect]
     Active Substance: OCRELIZUMAB
     Dosage: FULL DOSE, EVERY 6 MONTHS ;ONGOING: YES
     Route: 065
     Dates: start: 201803
  3. OCREVUS [Suspect]
     Active Substance: OCRELIZUMAB
     Dosage: OTHER HALF DOSE
     Route: 065
     Dates: start: 201709

REACTIONS (7)
  - Feeling abnormal [Unknown]
  - Ill-defined disorder [Unknown]
  - Dysarthria [Unknown]
  - Multiple sclerosis relapse [Not Recovered/Not Resolved]
  - Fatigue [Unknown]
  - Muscular weakness [Unknown]
  - Myocardial infarction [Recovered/Resolved]

NARRATIVE: CASE EVENT DATE: 20180314
